FAERS Safety Report 4882311-9 (Version None)
Quarter: 2006Q1

REPORT INFORMATION
  Report Type: 
  Country: None (occurrence: None)
  Receive Date: 20060117
  Receipt Date: 20050419
  Transmission Date: 20060701
  Serious: Yes (Other)
  Sender: FDA-Public Use
  Company Number: US-GLAXOSMITHKLINE-A0554695A

PATIENT
  Age: 80 Year
  Sex: Female

DRUGS (2)
  1. SENSODYNE-F [Suspect]
     Indication: SENSITIVITY OF TEETH
     Dates: start: 19900101
  2. PREDNISONE [Concomitant]

REACTIONS (1)
  - CATARACT [None]
